FAERS Safety Report 20967992 (Version 1)
Quarter: 2022Q2

REPORT INFORMATION
  Report Type: Spontaneous
  Country: GR (occurrence: GR)
  Receive Date: 20220616
  Receipt Date: 20220616
  Transmission Date: 20220721
  Serious: Yes (Other)
  Sender: FDA-Public Use
  Company Number: None

PATIENT
  Age: 76 Year
  Sex: Female
  Weight: 63 kg

DRUGS (1)
  1. PROLIA [Suspect]
     Active Substance: DENOSUMAB
     Indication: Osteoporosis
     Dosage: ONE ADMINISTRATION OF THE DRUG (SINGLE) EVERY 6 MONTHS
     Route: 058

REACTIONS (3)
  - Soft tissue disorder [Not Recovered/Not Resolved]
  - Cyst [Not Recovered/Not Resolved]
  - Oedema [Not Recovered/Not Resolved]
